FAERS Safety Report 9297696 (Version 1)
Quarter: 2013Q2

REPORT INFORMATION
  Report Type: Spontaneous
  Country: US (occurrence: None)
  Receive Date: 20130517
  Receipt Date: 20130517
  Transmission Date: 20140414
  Serious: Yes (Hospitalization)
  Sender: FDA-Public Use
  Company Number: None

PATIENT
  Age: 67 Year
  Sex: Female

DRUGS (1)
  1. MULTIPLE CAM PRODUCTS [Suspect]
     Dates: start: 20110215, end: 20110218

REACTIONS (1)
  - Hepatitis acute [None]
